FAERS Safety Report 13240129 (Version 5)
Quarter: 2017Q2

REPORT INFORMATION
  Report Type: Spontaneous
  Country: JP (occurrence: JP)
  Receive Date: 20170216
  Receipt Date: 20170414
  Transmission Date: 20170830
  Serious: Yes (Death, Other)
  Sender: FDA-Public Use
  Company Number: JP-GLAXOSMITHKLINE-JP2017JPN021596

PATIENT
  Age: 14 Year
  Sex: Male

DRUGS (6)
  1. INFLUENZA HA VACCINE [Concomitant]
     Active Substance: INFLUENZA VIRUS VACCINE
     Dosage: UNK
     Dates: start: 20161115, end: 20161115
  2. CALONAL [Concomitant]
     Active Substance: ACETAMINOPHEN
     Dosage: 400 MG, PRN
     Route: 048
  3. TRANSAMIN [Concomitant]
     Active Substance: TRANEXAMIC ACID
     Dosage: 250 MG, TID
     Route: 048
  4. MUCODYNE [Concomitant]
     Active Substance: CARBOCYSTEINE
     Dosage: 250 MG, TID
     Route: 048
     Dates: start: 20170214
  5. RELENZA [Suspect]
     Active Substance: ZANAMIVIR
     Indication: INFLUENZA
     Dosage: 10 MG, QD
     Route: 055
     Dates: start: 20170214
  6. RESPLEN [Concomitant]
     Active Substance: EPRAZINONE
     Dosage: 20 MG, TID
     Route: 048

REACTIONS (6)
  - Cardio-respiratory arrest [Unknown]
  - Abnormal behaviour [Fatal]
  - Traumatic haemothorax [Unknown]
  - Spinal cord injury cervical [Unknown]
  - Liver injury [Unknown]
  - Fall [Fatal]

NARRATIVE: CASE EVENT DATE: 20170214
